FAERS Safety Report 8839539 (Version 2)
Quarter: 2013Q1

REPORT INFORMATION
  Report Type: Spontaneous
  Country: DE (occurrence: DE)
  Receive Date: 20121015
  Receipt Date: 20130110
  Transmission Date: 20140127
  Serious: Yes (Hospitalization, Other)
  Sender: FDA-Public Use
  Company Number: PHHY2012DE090068

PATIENT
  Sex: Female
  Weight: 58.2 kg

DRUGS (1)
  1. GLIVEC [Suspect]
     Indication: CHRONIC MYELOID LEUKAEMIA
     Dosage: 400 MG, PER DAY
     Route: 048
     Dates: start: 200304

REACTIONS (3)
  - Breast cancer [Recovering/Resolving]
  - Second primary malignancy [Recovering/Resolving]
  - Colitis ulcerative [Recovered/Resolved]
